FAERS Safety Report 11018064 (Version 2)
Quarter: 2015Q2

REPORT INFORMATION
  Report Type: Spontaneous
  Country: US (occurrence: US)
  Receive Date: 20150412
  Receipt Date: 20150524
  Transmission Date: 20150821
  Serious: Yes (Other)
  Sender: FDA-Public Use
  Company Number: US-JNJFOC-20140803597

PATIENT

DRUGS (6)
  1. CYCLOPHOSPHAMIDE. [Suspect]
     Active Substance: CYCLOPHOSPHAMIDE
     Indication: DIFFUSE LARGE B-CELL LYMPHOMA
     Dosage: IN CYCLES EVERY 21 D
     Route: 065
  2. RITUXIMAB [Suspect]
     Active Substance: RITUXIMAB
     Indication: DIFFUSE LARGE B-CELL LYMPHOMA
     Dosage: EVERY 21 D FOR FIRST 6 CYCLES. OMITTED FROM 7 AND 8 CYCLES
     Route: 065
  3. VINCRISTINE [Suspect]
     Active Substance: VINCRISTINE
     Indication: DIFFUSE LARGE B-CELL LYMPHOMA
     Dosage: IN CYCLES EVERY 21 D
     Route: 065
  4. TOSITUMOMAB-IODINE 131 [Suspect]
     Active Substance: IODINE\TOSITUMOMAB
     Indication: DIFFUSE LARGE B-CELL LYMPHOMA
     Dosage: 30?60 D AFTER CYCLE 8 OF CHOP
     Route: 065
  5. DOXORUBICIN [Suspect]
     Active Substance: DOXORUBICIN
     Indication: DIFFUSE LARGE B-CELL LYMPHOMA
     Route: 042
  6. PREDNISONE. [Suspect]
     Active Substance: PREDNISONE
     Indication: DIFFUSE LARGE B-CELL LYMPHOMA
     Dosage: IN CYCLES EVERY 21 D
     Route: 065

REACTIONS (1)
  - Fatigue [Unknown]
